FAERS Safety Report 13679092 (Version 2)
Quarter: 2017Q3

REPORT INFORMATION
  Report Type: Spontaneous
  Country: JP (occurrence: JP)
  Receive Date: 20170622
  Receipt Date: 20170825
  Transmission Date: 20171127
  Serious: Yes (Other)
  Sender: FDA-Public Use
  Company Number: PHJP2017JP020370

PATIENT
  Age: 64 Year
  Sex: Female

DRUGS (1)
  1. AFINITOR [Suspect]
     Active Substance: EVEROLIMUS
     Indication: BREAST CANCER METASTATIC
     Dosage: UNK
     Route: 048

REACTIONS (7)
  - Sclerema [Unknown]
  - Stomatitis [Unknown]
  - Diabetes mellitus [Unknown]
  - Dyspnoea [Unknown]
  - Pigmentation disorder [Unknown]
  - Hyperglycaemia [Unknown]
  - Oedema peripheral [Unknown]
